FAERS Safety Report 13722071 (Version 1)
Quarter: 2017Q3

REPORT INFORMATION
  Report Type: Spontaneous
  Country: US (occurrence: US)
  Receive Date: 20170706
  Receipt Date: 20170706
  Transmission Date: 20171127
  Serious: No
  Sender: FDA-Public Use
  Company Number: US-PFIZER INC-2017284245

PATIENT
  Sex: Male

DRUGS (1)
  1. METHOTREXATE SODIUM. [Suspect]
     Active Substance: METHOTREXATE SODIUM
     Dosage: 20 MG, WEEKLY

REACTIONS (11)
  - Arthralgia [Unknown]
  - Wheezing [Unknown]
  - Joint swelling [Unknown]
  - Muscle tightness [Unknown]
  - Back pain [Unknown]
  - Synovitis [Unknown]
  - Grip strength decreased [Unknown]
  - Infection [Unknown]
  - Musculoskeletal stiffness [Unknown]
  - Joint range of motion decreased [Unknown]
  - Wrist deformity [Unknown]
